FAERS Safety Report 13254877 (Version 7)
Quarter: 2019Q1

REPORT INFORMATION
  Report Type: Spontaneous
  Country: US (occurrence: US)
  Receive Date: 20170221
  Receipt Date: 20190314
  Transmission Date: 20190417
  Serious: Yes (Other)
  Sender: FDA-Public Use
  Company Number: US-PFIZER INC-2017070794

PATIENT
  Age: 62 Year
  Sex: Female
  Weight: 92.99 kg

DRUGS (33)
  1. IBRANCE [Suspect]
     Active Substance: PALBOCICLIB
     Indication: BREAST CANCER STAGE IV
     Dosage: 125 MG, 21DAYS/QD, 7 DAYS OFF
     Route: 048
     Dates: start: 20170127, end: 20170511
  2. SYNTHROID [Concomitant]
     Active Substance: LEVOTHYROXINE SODIUM
     Dosage: SUN 75MCG
  3. NALTREXONE [Concomitant]
     Active Substance: NALTREXONE
     Dosage: 4.5 MG, 1X/DAY
  4. PANTOPRAZOLE SODIUM. [Concomitant]
     Active Substance: PANTOPRAZOLE SODIUM
     Indication: GASTRECTOMY
     Dosage: 40 MG, 1X/DAY
     Dates: start: 20160720
  5. XANAX [Concomitant]
     Active Substance: ALPRAZOLAM
     Dosage: 0.5 MG, AS NEEDED [PRN]
  6. BIOTIN [Concomitant]
     Active Substance: BIOTIN
     Dosage: 5000 MG, DAILY [2/QD- 2500 MG BIOTIN/15 VIT C/15 IU VIT E]
     Dates: end: 20180604
  7. PYCNOGENOL [Concomitant]
     Active Substance: DIETARY SUPPLEMENT
     Dosage: 200 MG, UNK [1 HR PRIOR TO FLYING]
     Dates: start: 20180420, end: 20180422
  8. CALCIUM CARBONATE. [Concomitant]
     Active Substance: CALCIUM CARBONATE
     Dosage: UNK (1/QD-650MG CAL/12.5MG VIT D/40UG VITK)
  9. SYNTHROID [Concomitant]
     Active Substance: LEVOTHYROXINE SODIUM
     Dosage: 88 MCG/QD M-SAT
  10. CYTOMEL [Concomitant]
     Active Substance: LIOTHYRONINE SODIUM
     Dosage: 15 UG, 1X/DAY [5MCG/TID: (PRESCRIBED 7.5/BID, TAKE 2.5/5MCG/QD]
  11. DEPLIN [Concomitant]
     Active Substance: LEVOMEFOLATE CALCIUM
     Dosage: 15 MG, 1X/DAY
  12. XANAX [Concomitant]
     Active Substance: ALPRAZOLAM
     Dosage: 0.25 MG, AS NEEDED [PRN/ 30 PILL PRESCRIPTION 2X SINCE]
     Dates: start: 2014
  13. CARAFATE [Concomitant]
     Active Substance: SUCRALFATE
     Dosage: UNK, AS NEEDED (1G/10ML/QID-PRN/PRESCRIBED QID, TAKE PRN)
     Dates: start: 20161006
  14. VITAMIN D3 [Concomitant]
     Active Substance: CHOLECALCIFEROL
     Dosage: 5000 IU, 2X/DAY
  15. IBRANCE [Suspect]
     Active Substance: PALBOCICLIB
     Dosage: 125 MG, 1X/DAY
     Route: 048
     Dates: start: 20180214, end: 20180502
  16. VITAMIN E [Concomitant]
     Active Substance: .ALPHA.-TOCOPHEROL
     Dosage: UNK
     Dates: end: 20180604
  17. UBIQUINONE [Concomitant]
     Active Substance: UBIDECARENONE
     Dosage: 200 MG, 1X/DAY
  18. VITAMINS C [Concomitant]
     Dosage: 15 IU, UNK [VIT C/15 IU]
     Dates: end: 20180604
  19. LETROZOLE. [Concomitant]
     Active Substance: LETROZOLE
     Dosage: 2.5 MG, 1X/DAY (W/FOOD)
     Dates: start: 20170117
  20. NALTREXONE [Concomitant]
     Active Substance: NALTREXONE
     Dosage: 3 MG, UNK
     Dates: start: 20160201
  21. VITAMIN D [Concomitant]
     Active Substance: CHOLECALCIFEROL
     Dosage: 12.5 MG, UNK
  22. PYCNOGENOL [Concomitant]
     Active Substance: DIETARY SUPPLEMENT
     Dosage: 100 MG, 1X/DAY
  23. MAGNESIUM [Concomitant]
     Active Substance: MAGNESIUM
     Dosage: 500 MG, 1X/DAY
  24. IBRANCE [Suspect]
     Active Substance: PALBOCICLIB
     Dosage: 100 MG, 1X/DAY
     Route: 048
     Dates: start: 20180523, end: 20180603
  25. IBRANCE [Suspect]
     Active Substance: PALBOCICLIB
     Dosage: EVERY OTHER DAY 125MG- 100MG /125 MG ALTERNATE DAY W/100MG
     Route: 048
     Dates: start: 20180604
  26. GARLIC. [Concomitant]
     Active Substance: GARLIC
     Dosage: 270 MG, 1X/DAY
  27. CYTOMEL [Concomitant]
     Active Substance: LIOTHYRONINE SODIUM
     Dosage: 5 UG, UNK [5MCG X 2]
  28. AMOXICILLIN. [Concomitant]
     Active Substance: AMOXICILLIN
     Indication: TOOTH DISORDER
     Dosage: 2000 MG, AS NEEDED [500MG X 4/PRN (2000MG X 4, USE PRIOR TO DENTAL PROCEDURE)]
  29. KRILL OIL [Concomitant]
     Active Substance: DIETARY SUPPLEMENT
     Dosage: 500 MG, 1X/DAY
  30. BUPROPION HYDROCHLORIDE XL [Concomitant]
     Active Substance: BUPROPION HYDROCHLORIDE
     Dosage: 150 MG, 1X/DAY (PRESCRIBED BID)
  31. CAYENNE [Concomitant]
     Dosage: 270 MG, 1X/DAY
  32. DOCUSATE SODIUM. [Concomitant]
     Active Substance: DOCUSATE SODIUM
     Indication: CONSTIPATION
     Dosage: 100 MG, 1X/DAY
  33. VITAMIN K [Concomitant]
     Active Substance: PHYTONADIONE
     Dosage: 40 UG, UNK

REACTIONS (9)
  - Neuropathy peripheral [Unknown]
  - Onychoclasis [Unknown]
  - Product use issue [Unknown]
  - Product dispensing error [Recovered/Resolved]
  - White blood cell count decreased [Not Recovered/Not Resolved]
  - Alopecia [Unknown]
  - Inappropriate schedule of product administration [Unknown]
  - Fatigue [Unknown]
  - Hypometabolism [Unknown]

NARRATIVE: CASE EVENT DATE: 2017
